FAERS Safety Report 6155303-X (Version None)
Quarter: 2009Q2

REPORT INFORMATION
  Report Type: 
  Country: None (occurrence: None)
  Receive Date: 20090415
  Receipt Date: 20090331
  Transmission Date: 20091009
  Serious: Yes (Hospitalization)
  Sender: FDA-Public Use
  Company Number: BR-BAYER-200816276LA

PATIENT
  Age: 30 Year
  Sex: Female

DRUGS (1)
  1. YAZ [Suspect]
     Indication: ORAL CONTRACEPTION
     Dosage: 24D/28D
     Route: 048
     Dates: start: 20070901, end: 20080201

REACTIONS (4)
  - ABORTION THREATENED [None]
  - ANTEPARTUM HAEMORRHAGE [None]
  - POLYMENORRHOEA [None]
  - PREGNANCY ON ORAL CONTRACEPTIVE [None]
